FAERS Safety Report 11363731 (Version 8)
Quarter: 2019Q3

REPORT INFORMATION
  Report Type: Spontaneous
  Country: CA (occurrence: CA)
  Receive Date: 20150811
  Receipt Date: 20190730
  Transmission Date: 20191004
  Serious: Yes (Other)
  Sender: FDA-Public Use
  Company Number: CA-ROCHE-1619598

PATIENT
  Age: 64 Year
  Sex: Female

DRUGS (11)
  1. XOLAIR [Suspect]
     Active Substance: OMALIZUMAB
     Route: 058
     Dates: start: 20150507
  2. XOLAIR [Suspect]
     Active Substance: OMALIZUMAB
     Route: 058
     Dates: start: 20170601
  3. SYMBICORT [Concomitant]
     Active Substance: BUDESONIDE\FORMOTEROL FUMARATE DIHYDRATE
     Indication: PRODUCT USED FOR UNKNOWN INDICATION
     Dosage: 200 UG, 2 PUFFS IN MORNING AND EVENING
     Route: 065
  4. XOLAIR [Suspect]
     Active Substance: OMALIZUMAB
     Route: 058
     Dates: start: 20140224
  5. ALVESCO [Concomitant]
     Active Substance: CICLESONIDE
     Dosage: 2 PUFFS IN THE MORNING
     Route: 065
  6. SPIRIVA [Concomitant]
     Active Substance: TIOTROPIUM BROMIDE MONOHYDRATE
     Indication: ASTHMA
     Route: 065
  7. XOLAIR [Suspect]
     Active Substance: OMALIZUMAB
     Route: 058
     Dates: start: 20170504
  8. XOLAIR [Suspect]
     Active Substance: OMALIZUMAB
     Indication: ASTHMA
     Route: 058
     Dates: start: 20130829
  9. XOLAIR [Suspect]
     Active Substance: OMALIZUMAB
     Route: 058
     Dates: start: 20180822
  10. XOLAIR [Suspect]
     Active Substance: OMALIZUMAB
     Route: 058
     Dates: start: 20150702
  11. XOLAIR [Suspect]
     Active Substance: OMALIZUMAB
     Route: 058
     Dates: start: 20180403

REACTIONS (30)
  - Oropharyngeal pain [Recovered/Resolved]
  - Spinal pain [Unknown]
  - Glossodynia [Unknown]
  - Skin discolouration [Unknown]
  - Nasopharyngitis [Unknown]
  - Chills [Unknown]
  - Eye irritation [Recovered/Resolved]
  - Wrist fracture [Unknown]
  - Skin papilloma [Recovering/Resolving]
  - Middle insomnia [Recovering/Resolving]
  - Acne [Unknown]
  - Sensation of foreign body [Recovered/Resolved]
  - Bronchitis [Unknown]
  - Herpes zoster [Unknown]
  - Immune system disorder [Unknown]
  - Malaise [Recovered/Resolved]
  - Gait inability [Unknown]
  - Headache [Recovered/Resolved]
  - Asthma [Unknown]
  - Musculoskeletal pain [Unknown]
  - Rash [Unknown]
  - Obstructive airways disorder [Unknown]
  - Fall [Unknown]
  - Bacterial infection [Unknown]
  - Pulmonary function test abnormal [Unknown]
  - Sensory disturbance [Unknown]
  - Nausea [Recovered/Resolved]
  - Pruritus [Recovered/Resolved]
  - Pain in extremity [Unknown]
  - Respiratory tract infection [Unknown]

NARRATIVE: CASE EVENT DATE: 20130829
